FAERS Safety Report 21656930 (Version 2)
Quarter: 2023Q1

REPORT INFORMATION
  Report Type: Spontaneous
  Country: US (occurrence: US)
  Receive Date: 20221129
  Receipt Date: 20230126
  Transmission Date: 20230418
  Serious: Yes (Other)
  Sender: FDA-Public Use
  Company Number: US-BAYER-2022A160273

PATIENT
  Age: 55 Year
  Sex: Female

DRUGS (1)
  1. MIRENA [Suspect]
     Active Substance: LEVONORGESTREL
     Indication: Endometrial cancer
     Dosage: 20?G/DAY
     Route: 015
     Dates: start: 20220712, end: 20220822

REACTIONS (5)
  - Genital haemorrhage [None]
  - Device expulsion [Recovered/Resolved]
  - Abdominal pain lower [None]
  - Off label use of device [None]
  - Device use issue [None]

NARRATIVE: CASE EVENT DATE: 20220822
